FAERS Safety Report 7653526-1 (Version None)
Quarter: 2011Q3

REPORT INFORMATION
  Report Type: 
  Country: None (occurrence: None)
  Receive Date: 20110803
  Receipt Date: 20110727
  Transmission Date: 20111222
  Serious: Yes (Other)
  Sender: FDA-Public Use
  Company Number: US-BAYER-200942444NA

PATIENT
  Sex: Male
  Weight: 63 kg

DRUGS (31)
  1. TRASYLOL [Suspect]
     Indication: CENTRAL VENOUS CATHETERISATION
     Dosage: 200 ML, UNK
     Route: 040
     Dates: start: 20040728, end: 20040728
  2. TRASYLOL [Suspect]
     Indication: CHEST TUBE INSERTION
     Dosage: 50 ML, Q1HR
     Route: 041
     Dates: start: 20040728, end: 20040728
  3. DIGOXIN [Concomitant]
     Indication: PRODUCT USED FOR UNKNOWN INDICATION
     Dosage: 0.25 MG, QD
     Route: 048
     Dates: start: 20040726
  4. FENTANYL [Concomitant]
     Indication: PRODUCT USED FOR UNKNOWN INDICATION
     Dosage: UNK
     Route: 042
     Dates: start: 20040728
  5. EPHEDRINE [Concomitant]
     Indication: PRODUCT USED FOR UNKNOWN INDICATION
     Dosage: UNK
     Route: 042
     Dates: start: 20040728
  6. DOPAMINE HCL [Concomitant]
     Indication: PRODUCT USED FOR UNKNOWN INDICATION
     Dosage: UNK
     Route: 042
     Dates: start: 20040728
  7. HEPARIN [Concomitant]
     Indication: PRODUCT USED FOR UNKNOWN INDICATION
     Dosage: UNK
     Route: 042
     Dates: start: 20040728
  8. ANCEF [Concomitant]
     Indication: PRODUCT USED FOR UNKNOWN INDICATION
     Dosage: 1 G, UNK
     Route: 042
     Dates: start: 20040728
  9. PLATELETS [Concomitant]
     Indication: PRODUCT USED FOR UNKNOWN INDICATION
     Dosage: 1 U, UNK
     Route: 042
     Dates: start: 20040728
  10. INSULIN [INSULIN] [Concomitant]
     Indication: PRODUCT USED FOR UNKNOWN INDICATION
     Dosage: SLIDING SCALE UNK
     Dates: start: 20040726
  11. NITROGLYCERIN [Concomitant]
     Indication: PRODUCT USED FOR UNKNOWN INDICATION
     Dosage: UNK
     Route: 042
     Dates: start: 20040728
  12. NIMBEX [Concomitant]
     Indication: PRODUCT USED FOR UNKNOWN INDICATION
     Dosage: UNK
     Route: 042
     Dates: start: 20040728
  13. GENTAMYCIN SULFATE [Concomitant]
     Dosage: 120 MG, TID
     Route: 042
     Dates: start: 20040726
  14. HABITROL [Concomitant]
     Dosage: 21 MG, QD
  15. PROTONIX [Concomitant]
  16. LANOXIN [Concomitant]
  17. CARDIZEM [Concomitant]
  18. VERSED [Concomitant]
     Indication: PRODUCT USED FOR UNKNOWN INDICATION
     Dosage: UNK
     Route: 042
     Dates: start: 20040728
  19. RED BLOOD CELLS [Concomitant]
     Indication: PRODUCT USED FOR UNKNOWN INDICATION
     Dosage: UNK
     Route: 042
     Dates: start: 20040728
  20. FRESH FROZEN PLASMA [Concomitant]
     Indication: PRODUCT USED FOR UNKNOWN INDICATION
     Dosage: 2 U, UNK
     Route: 042
     Dates: start: 20040728
  21. GENTAMYCIN SULFATE [Concomitant]
     Indication: PRODUCT USED FOR UNKNOWN INDICATION
     Dosage: UNK
     Dates: start: 20040723
  22. LASIX [Concomitant]
  23. OXACILLIN [Concomitant]
  24. ALTACE [Concomitant]
  25. TRASYLOL [Suspect]
     Indication: AORTIC VALVE REPLACEMENT
     Dosage: 1 ML (TEST DOSE), UNK
     Route: 042
     Dates: start: 20040728, end: 20040728
  26. VANCOMYCIN [Concomitant]
     Indication: ANTIBIOTIC PROPHYLAXIS
     Dosage: UNK
     Dates: start: 20040715
  27. VANCOMYCIN [Concomitant]
     Dosage: 1 G, UNK
     Route: 042
     Dates: start: 20040726
  28. MULTI-VITAMIN [Concomitant]
  29. RIFAMPIN [Concomitant]
     Indication: PRODUCT USED FOR UNKNOWN INDICATION
     Dosage: 300 MG, QD
     Route: 048
     Dates: start: 20040726
  30. NAFCILLIN [Concomitant]
     Indication: PRODUCT USED FOR UNKNOWN INDICATION
     Dosage: 2 G, Q4HR
     Route: 042
     Dates: start: 20040726
  31. CONTRAST MEDIA [Concomitant]
     Indication: ARTERIOGRAM CORONARY
     Dosage: UNK
     Dates: start: 20040723

REACTIONS (10)
  - EMOTIONAL DISTRESS [None]
  - FEAR [None]
  - RENAL FAILURE [None]
  - INJURY [None]
  - RENAL IMPAIRMENT [None]
  - ANXIETY [None]
  - PAIN [None]
  - UNEVALUABLE EVENT [None]
  - RENAL INJURY [None]
  - STRESS [None]
